FAERS Safety Report 5544681-8 (Version None)
Quarter: 2007Q4

REPORT INFORMATION
  Report Type: 
  Country: None (occurrence: None)
  Receive Date: 20071210
  Receipt Date: 20070104
  Transmission Date: 20080405
  Serious: No
  Sender: FDA-Public Use
  Company Number: US-AMGEN-KDL205613

PATIENT
  Sex: Female

DRUGS (2)
  1. ENBREL [Suspect]
     Indication: PSORIATIC ARTHROPATHY
     Route: 058
     Dates: start: 20010201
  2. METHOTREXATE [Concomitant]
     Dates: start: 19940101

REACTIONS (5)
  - BACK PAIN [None]
  - PAIN IN EXTREMITY [None]
  - RENAL DISORDER [None]
  - WALKING AID USER [None]
  - WHEELCHAIR USER [None]
